FAERS Safety Report 5407073-8 (Version None)
Quarter: 2007Q3

REPORT INFORMATION
  Report Type: 
  Country: None (occurrence: None)
  Receive Date: 20070807
  Receipt Date: 20070730
  Transmission Date: 20080115
  Serious: Yes (Life-Threatening, Hospitalization, Other)
  Sender: FDA-Public Use
  Company Number: DE-GENENTECH-244798

PATIENT
  Sex: Male
  Weight: 81 kg

DRUGS (4)
  1. RITUXAN [Suspect]
     Indication: RHEUMATOID ARTHRITIS
     Dosage: 1 G, DAYS 1+15
     Route: 042
     Dates: start: 20070529, end: 20070613
  2. PREDNISOLONE [Suspect]
     Indication: RHEUMATOID ARTHRITIS
     Route: 048
     Dates: start: 20070704
  3. SEVREDOL [Concomitant]
     Indication: RHEUMATOID ARTHRITIS
     Route: 048
     Dates: start: 20070704
  4. FENTANYL [Concomitant]
     Indication: DRUG USE FOR UNKNOWN INDICATION
     Dosage: 100 A?G, Q3D
     Route: 062

REACTIONS (2)
  - GASTROINTESTINAL PERFORATION [None]
  - MYOCARDIAL INFARCTION [None]
